FAERS Safety Report 14347988 (Version 2)
Quarter: 2018Q1

REPORT INFORMATION
  Report Type: Spontaneous
  Country: CN (occurrence: CN)
  Receive Date: 20180103
  Receipt Date: 20180116
  Transmission Date: 20180509
  Serious: Yes (Other)
  Sender: FDA-Public Use
  Company Number: CN-ELI_LILLY_AND_COMPANY-CN201712012259

PATIENT
  Sex: Female

DRUGS (2)
  1. HUMALOG MIX75/25 [Suspect]
     Active Substance: INSULIN LISPRO
     Indication: DIABETES MELLITUS
     Dosage: 16 (UNITS NOT SPECIFIED), EACH MORNING
     Route: 058
     Dates: start: 20171222
  2. HUMALOG MIX75/25 [Suspect]
     Active Substance: INSULIN LISPRO
     Dosage: 14 (UNITS NOT SPECIFIED), EACH EVENING
     Route: 058
     Dates: start: 20171222

REACTIONS (2)
  - Hypoglycaemia [Unknown]
  - Syncope [Unknown]

NARRATIVE: CASE EVENT DATE: 20171225
